FAERS Safety Report 20080006 (Version 1)
Quarter: 2021Q4

REPORT INFORMATION
  Report Type: Spontaneous
  Country: US (occurrence: US)
  Receive Date: 20211117
  Receipt Date: 20211117
  Transmission Date: 20220303
  Serious: Yes (Other)
  Sender: FDA-Public Use
  Company Number: US-GLAXOSMITHKLINE-US2021GSK236763

PATIENT
  Sex: Male

DRUGS (7)
  1. ZANTAC [Suspect]
     Active Substance: RANITIDINE HYDROCHLORIDE
     Indication: Vascular graft
     Dosage: 150 MG, QD
     Route: 065
     Dates: start: 201107, end: 201912
  2. ZANTAC [Suspect]
     Active Substance: RANITIDINE HYDROCHLORIDE
     Indication: Vascular graft
     Dosage: 150 MG, QD
     Route: 065
     Dates: start: 201107, end: 201912
  3. RANITIDINE HYDROCHLORIDE [Suspect]
     Active Substance: RANITIDINE HYDROCHLORIDE
     Indication: Vascular graft
     Dosage: 150 MG, QD
     Route: 065
     Dates: start: 201107, end: 201912
  4. RANITIDINE HYDROCHLORIDE [Suspect]
     Active Substance: RANITIDINE HYDROCHLORIDE
     Indication: Vascular graft
     Dosage: 150 MG, QD
     Route: 065
     Dates: start: 201107, end: 201912
  5. ZANTAC [Suspect]
     Active Substance: RANITIDINE HYDROCHLORIDE
     Indication: Vascular graft
     Dosage: 150 MG, QD
     Route: 065
     Dates: start: 201107, end: 201912
  6. RANITIDINE [Suspect]
     Active Substance: RANITIDINE
     Indication: Vascular graft
     Dosage: 150 MG, QD
     Route: 065
     Dates: start: 201107, end: 201912
  7. RANITIDINE [Suspect]
     Active Substance: RANITIDINE
     Indication: Vascular graft
     Dosage: 150 MG, QD
     Route: 065
     Dates: start: 201107, end: 201912

REACTIONS (2)
  - Oesophageal carcinoma [Unknown]
  - Renal cancer [Unknown]
